FAERS Safety Report 5367012-5 (Version None)
Quarter: 2007Q2

REPORT INFORMATION
  Report Type: 
  Country: None (occurrence: None)
  Receive Date: 20070619
  Receipt Date: 20070619
  Transmission Date: 20071010
  Serious: Yes (Life-Threatening, Hospitalization)
  Sender: FDA-Public Use
  Company Number: None

PATIENT
  Sex: Male
  Weight: 73.9363 kg

DRUGS (1)
  1. LEVAQUIN [Suspect]
     Indication: PNEUMONIA
     Dosage: BAG OF 500MG CONTINUOUS FOR 8 DAYS
     Dates: start: 20070305, end: 20070312

REACTIONS (4)
  - ANOREXIA [None]
  - CONTRAINDICATION TO MEDICAL TREATMENT [None]
  - EATING DISORDER [None]
  - WEIGHT DECREASED [None]
